FAERS Safety Report 8547599-1 (Version None)
Quarter: 2012Q3

REPORT INFORMATION
  Report Type: 
  Country: None (occurrence: None)
  Receive Date: 20120727
  Receipt Date: 20120503
  Transmission Date: 20120928
  Serious: Yes (Other)
  Sender: FDA-Public Use
  Company Number: US-ASTRAZENECA-2012SE16754

PATIENT
  Age: 62 Year
  Sex: Female

DRUGS (4)
  1. EFFEXOR [Concomitant]
     Indication: PSYCHOTIC DISORDER
  2. POTASSIUM CHLORIDE [Concomitant]
  3. SEROQUEL XR [Suspect]
     Route: 048
  4. KLOR-CON [Concomitant]

REACTIONS (4)
  - MOOD SWINGS [None]
  - INTENTIONAL DRUG MISUSE [None]
  - DEPRESSION [None]
  - SUICIDAL IDEATION [None]
